FAERS Safety Report 7055251-7 (Version None)
Quarter: 2010Q4

REPORT INFORMATION
  Report Type: 
  Country: None (occurrence: None)
  Receive Date: 20101021
  Receipt Date: 20101015
  Transmission Date: 20110411
  Serious: Yes (Death)
  Sender: FDA-Public Use
  Company Number: PHHY2010IE11499

PATIENT
  Sex: Male

DRUGS (11)
  1. CLOZARIL [Suspect]
     Indication: SCHIZOPHRENIA
     Dosage: UNK
     Dates: start: 20040326
  2. DETRUSITOL [Concomitant]
     Dosage: 4 MG, QD
  3. NEXIUM [Concomitant]
     Dosage: 20 MG, QD
  4. LIPITOR [Concomitant]
     Dosage: 10 MG, QD
  5. ZOLPIDEM TARTRATE [Concomitant]
     Dosage: 10 MG, QD
  6. EPILIM CHRONO [Concomitant]
     Dosage: 800 MG, BID
  7. AKINETON [Concomitant]
     Dosage: 4 MG, QD
  8. OLANZAPINE [Concomitant]
     Dosage: 10 MG, BID
  9. DIAZEPAM [Concomitant]
     Dosage: 5 MG, TID
  10. METATONE [Concomitant]
     Dosage: 10 ML, TID
  11. KWELLS [Concomitant]
     Dosage: 150 MG, BID

REACTIONS (1)
  - COMPLETED SUICIDE [None]
